FAERS Safety Report 15863816 (Version 1)
Quarter: 2019Q1

REPORT INFORMATION
  Report Type: Spontaneous
  Country: US (occurrence: US)
  Receive Date: 20190124
  Receipt Date: 20190124
  Transmission Date: 20190417
  Serious: No
  Sender: FDA-Public Use
  Company Number: US-GLAXOSMITHKLINE-US2019007606

PATIENT
  Sex: Female

DRUGS (1)
  1. PREVACID 24 HR [Suspect]
     Active Substance: LANSOPRAZOLE
     Indication: PRODUCT USED FOR UNKNOWN INDICATION
     Dosage: 1 DF, 1D

REACTIONS (5)
  - Blood potassium increased [Unknown]
  - Lipoma [Unknown]
  - Incorrect product administration duration [Unknown]
  - Off label use [Unknown]
  - Blood creatinine increased [Unknown]
